FAERS Safety Report 4647785-7 (Version None)
Quarter: 2005Q2

REPORT INFORMATION
  Report Type: 
  Country: None (occurrence: None)
  Receive Date: 20050426
  Receipt Date: 20050415
  Transmission Date: 20051028
  Serious: No
  Sender: FDA-Public Use
  Company Number: 05P-056-0298041-00

PATIENT
  Age: 54 Year
  Sex: Female

DRUGS (2)
  1. BIAXIN [Suspect]
     Dosage: PER ORAL
     Route: 048
  2. LEVOTHYROXINE SODIUM [Concomitant]

REACTIONS (6)
  - AGEUSIA [None]
  - ANOSMIA [None]
  - DYSGEUSIA [None]
  - INFLUENZA [None]
  - PAROSMIA [None]
  - RHINITIS [None]
